FAERS Safety Report 24664866 (Version 2)
Quarter: 2025Q1

REPORT INFORMATION
  Report Type: Report from Study
  Country: BE (occurrence: BE)
  Receive Date: 20241126
  Receipt Date: 20250228
  Transmission Date: 20250409
  Serious: No
  Sender: BLUEPRINT MEDICINES
  Company Number: BE-Blueprint Medicines Corporation-SO-BE-2024-002425

PATIENT
  Age: 89 Year
  Sex: Female

DRUGS (3)
  1. AVAPRITINIB [Suspect]
     Active Substance: AVAPRITINIB
     Indication: Product used for unknown indication
     Route: 065
     Dates: start: 20240820
  2. AVAPRITINIB [Suspect]
     Active Substance: AVAPRITINIB
     Route: 065
     Dates: start: 202502
  3. AMISULPRIDE [Concomitant]
     Active Substance: AMISULPRIDE
     Indication: Cognitive disorder
     Route: 065
     Dates: start: 20250109

REACTIONS (3)
  - Cognitive disorder [Unknown]
  - Vomiting [Unknown]
  - Fall [Unknown]

NARRATIVE: CASE EVENT DATE: 20240901
